FAERS Safety Report 6600498-4 (Version None)
Quarter: 2010Q1

REPORT INFORMATION
  Report Type: 
  Country: None (occurrence: None)
  Receive Date: 20100223
  Receipt Date: 20100223
  Transmission Date: 20100710
  Serious: Yes (Life-Threatening, Hospitalization)
  Sender: FDA-Public Use
  Company Number: None

PATIENT
  Age: 36 Year
  Sex: Female
  Weight: 57.6068 kg

DRUGS (1)
  1. CLONAZEPAM [Suspect]
     Indication: ANXIETY
     Dosage: .05 MG ONCE/TWICE DAILY PO
     Route: 048
     Dates: start: 20100202, end: 20100220

REACTIONS (8)
  - ANXIETY [None]
  - CONDITION AGGRAVATED [None]
  - INJURY [None]
  - MOVEMENT DISORDER [None]
  - PRODUCT SUBSTITUTION ISSUE [None]
  - SELF-INJURIOUS IDEATION [None]
  - SPEECH DISORDER [None]
  - SUICIDAL IDEATION [None]
